FAERS Safety Report 4280018-2 (Version None)
Quarter: 2004Q1

REPORT INFORMATION
  Report Type: 
  Country: None (occurrence: None)
  Receive Date: 20040126
  Receipt Date: 20040112
  Transmission Date: 20041129
  Serious: Yes (Hospitalization, Other)
  Sender: FDA-Public Use
  Company Number: HQWYE236712JAN04

PATIENT
  Age: 53 Year
  Sex: Female

DRUGS (3)
  1. ADVIL [Suspect]
     Indication: MIGRAINE
     Dosage: SEE IMAGE
     Route: 048
     Dates: start: 20030901, end: 20030902
  2. ADVIL [Suspect]
     Indication: MIGRAINE
     Dosage: SEE IMAGE
     Route: 048
     Dates: start: 20030903, end: 20030903
  3. CODOLIPRANE (CODEINE PHOSPHATE/PARACETAMOL,   ) [Suspect]
     Dosage: ORAL
     Route: 048
     Dates: start: 20030903

REACTIONS (12)
  - ASPARTATE AMINOTRANSFERASE INCREASED [None]
  - BLOOD URIC ACID DECREASED [None]
  - C-REACTIVE PROTEIN INCREASED [None]
  - CHILLS [None]
  - COUGH [None]
  - CUTANEOUS VASCULITIS [None]
  - GAMMA-GLUTAMYLTRANSFERASE INCREASED [None]
  - LARYNGITIS [None]
  - PYREXIA [None]
  - RASH ERYTHEMATOUS [None]
  - RASH MACULAR [None]
  - RASH PAPULAR [None]
